FAERS Safety Report 25441172 (Version 1)
Quarter: 2025Q2

REPORT INFORMATION
  Report Type: Spontaneous
  Country: DE (occurrence: DE)
  Receive Date: 20250616
  Receipt Date: 20250616
  Transmission Date: 20250717
  Serious: Yes (Other)
  Sender: ELI LILLY AND COMPANY
  Company Number: DE-ELI_LILLY_AND_COMPANY-DE202506004815

PATIENT
  Sex: Female

DRUGS (2)
  1. ABEMACICLIB [Suspect]
     Active Substance: ABEMACICLIB
     Indication: Product used for unknown indication
     Route: 065
     Dates: start: 202505
  2. LETROZOLE [Concomitant]
     Active Substance: LETROZOLE
     Indication: Product used for unknown indication
     Route: 065

REACTIONS (5)
  - Blood pressure increased [Unknown]
  - Joint swelling [Unknown]
  - Onychoclasis [Unknown]
  - Fatigue [Unknown]
  - Alopecia [Unknown]
